FAERS Safety Report 8136640-6 (Version None)
Quarter: 2012Q1

REPORT INFORMATION
  Report Type: 
  Country: None (occurrence: None)
  Receive Date: 20120214
  Receipt Date: 20120208
  Transmission Date: 20120608
  Serious: Yes (Other)
  Sender: FDA-Public Use
  Company Number: US-ROCHE-744250

PATIENT
  Sex: Male
  Weight: 65.8 kg

DRUGS (4)
  1. VEMURAFENIB [Suspect]
     Route: 048
  2. OXYCONTIN [Concomitant]
  3. OXYCODONE HCL [Concomitant]
  4. VEMURAFENIB [Suspect]
     Indication: METASTATIC MALIGNANT MELANOMA
     Dosage: DATE OF LAST DOSE PRIOR TO SAE: 18 NOVEMBER 2010, TEMPORARILY INTERRUPTED.
     Route: 048
     Dates: start: 20100310, end: 20101118

REACTIONS (1)
  - IRIDOCYCLITIS [None]
